FAERS Safety Report 14007244 (Version 1)
Quarter: 2017Q3

REPORT INFORMATION
  Report Type: Spontaneous
  Country: US (occurrence: US)
  Receive Date: 20170924
  Receipt Date: 20170924
  Transmission Date: 20171128
  Serious: Yes (Other)
  Sender: FDA-Public Use
  Company Number: None

PATIENT
  Age: 44 Year
  Sex: Female
  Weight: 58.5 kg

DRUGS (6)
  1. VITAMIN B [Concomitant]
     Active Substance: VITAMIN B
  2. OTC ALLERGY MEDICATIONS [Concomitant]
  3. LEVOTHYROXIN [Concomitant]
     Active Substance: LEVOTHYROXINE
  4. MAGNESIUM [Concomitant]
     Active Substance: MAGNESIUM
  5. DULOXETINE. [Suspect]
     Active Substance: DULOXETINE
     Indication: DEPRESSION
     Dosage: ?          QUANTITY:1 CAPSULE(S);?
     Route: 048
     Dates: start: 20160827
  6. LAMOTRIGINE. [Concomitant]
     Active Substance: LAMOTRIGINE

REACTIONS (10)
  - Tongue disorder [None]
  - Diarrhoea [None]
  - Gastrointestinal disorder [None]
  - Abdominal distension [None]
  - Bipolar II disorder [None]
  - Hyperhidrosis [None]
  - Nausea [None]
  - Withdrawal syndrome [None]
  - Weight increased [None]
  - Migraine [None]

NARRATIVE: CASE EVENT DATE: 20170903
